FAERS Safety Report 6965086-9 (Version None)
Quarter: 2010Q3

REPORT INFORMATION
  Report Type: 
  Country: None (occurrence: None)
  Receive Date: 20100903
  Receipt Date: 20100824
  Transmission Date: 20110219
  Serious: Yes (Other)
  Sender: FDA-Public Use
  Company Number: US-SANOFI-AVENTIS-A03200903792

PATIENT
  Age: 74 Year
  Sex: Female

DRUGS (8)
  1. DRONEDARONE HCL [Suspect]
     Indication: ARRHYTHMIA
     Dosage: UNIT DOSE: 400 MG
     Route: 048
     Dates: start: 20090801, end: 20090801
  2. DRONEDARONE HCL [Suspect]
     Indication: ATRIAL FIBRILLATION
     Dosage: UNIT DOSE: 400 MG
     Route: 048
     Dates: start: 20090801, end: 20090801
  3. DRONEDARONE HCL [Suspect]
     Indication: ATRIAL FLUTTER
     Dosage: UNIT DOSE: 400 MG
     Route: 048
     Dates: start: 20090801, end: 20090801
  4. DRONEDARONE HCL [Suspect]
     Dosage: UNIT DOSE: 400 MG
     Route: 048
     Dates: start: 20090801, end: 20090801
  5. DRONEDARONE HCL [Suspect]
     Dosage: UNIT DOSE: 400 MG
     Route: 048
     Dates: start: 20090801, end: 20090801
  6. DRONEDARONE HCL [Suspect]
     Dosage: UNIT DOSE: 400 MG
     Route: 048
     Dates: start: 20090801, end: 20090801
  7. LOPRESSOR [Concomitant]
  8. ANTIHYPERTENSIVES [Concomitant]

REACTIONS (14)
  - ASTHENIA [None]
  - ATRIAL FIBRILLATION [None]
  - BLINDNESS TRANSIENT [None]
  - DIARRHOEA [None]
  - FALL [None]
  - HEAD INJURY [None]
  - HYPERHIDROSIS [None]
  - HYPOTENSION [None]
  - INCORRECT DOSE ADMINISTERED [None]
  - JOINT INJURY [None]
  - NAUSEA [None]
  - SALIVARY HYPERSECRETION [None]
  - SYNCOPE [None]
  - VOMITING [None]
